FAERS Safety Report 8207240-4 (Version None)
Quarter: 2012Q1

REPORT INFORMATION
  Report Type: 
  Country: None (occurrence: None)
  Receive Date: 20120312
  Receipt Date: 20120305
  Transmission Date: 20120608
  Serious: Yes (Life-Threatening)
  Sender: FDA-Public Use
  Company Number: 2012MA003003

PATIENT
  Age: 21 Year
  Sex: Female

DRUGS (4)
  1. ATRACURIUM [Concomitant]
  2. LIDOCAINE [Suspect]
     Indication: GENERAL ANAESTHESIA
  3. EPINEPHRINE [Concomitant]
  4. PROPOFOL [Concomitant]

REACTIONS (9)
  - PULMONARY OEDEMA [None]
  - SKIN TEST POSITIVE [None]
  - VENTRICULAR HYPOKINESIA [None]
  - VENTRICULAR FIBRILLATION [None]
  - LEFT VENTRICULAR DYSFUNCTION [None]
  - MITRAL VALVE INCOMPETENCE [None]
  - ALLERGIC MYOCARDITIS [None]
  - HYPOTENSION [None]
  - ACUTE MYOCARDIAL INFARCTION [None]
